FAERS Safety Report 15710836 (Version 1)
Quarter: 2018Q4

REPORT INFORMATION
  Report Type: Spontaneous
  Country: US (occurrence: US)
  Receive Date: 20181211
  Receipt Date: 20181211
  Transmission Date: 20190205
  Serious: Yes (Hospitalization)
  Sender: FDA-Public Use
  Company Number: US-SA-2018SA330481

PATIENT
  Age: 54 Year
  Sex: Female

DRUGS (1)
  1. LANTUS [Suspect]
     Active Substance: INSULIN GLARGINE
     Indication: TYPE 2 DIABETES MELLITUS
     Dosage: 48 U, HS
     Route: 065

REACTIONS (5)
  - Glycosylated haemoglobin increased [Unknown]
  - Injury associated with device [Unknown]
  - Injection site scar [Unknown]
  - Device leakage [Unknown]
  - Device operational issue [Unknown]
